FAERS Safety Report 6366540-3 (Version None)
Quarter: 2009Q3

REPORT INFORMATION
  Report Type: 
  Country: None (occurrence: None)
  Receive Date: 20090921
  Receipt Date: 20090914
  Transmission Date: 20100115
  Serious: Yes (Hospitalization)
  Sender: FDA-Public Use
  Company Number: US-BRISTOL-MYERS SQUIBB COMPANY-14778393

PATIENT
  Age: 54 Year
  Sex: Male
  Weight: 68 kg

DRUGS (6)
  1. DASATINIB [Suspect]
     Indication: NON-SMALL CELL LUNG CANCER
     Route: 048
     Dates: start: 20090913, end: 20090914
  2. MS CONTIN [Concomitant]
  3. OXYCODONE [Concomitant]
     Dosage: 1DOSGEFORM=10-20MG,Q4H
  4. COMPAZINE [Concomitant]
     Dosage: Q4H
  5. ZOFRAN [Concomitant]
  6. POTASSIUM PHOSPHATES [Concomitant]
     Route: 048

REACTIONS (1)
  - DEHYDRATION [None]
